FAERS Safety Report 5725218 (Version 15)
Quarter: 2012Q4

REPORT INFORMATION
  Report Type: 
  Country: US (occurrence: US)
  Receive Date: 20050128
  Receipt Date: 20121127
  Transmission Date: 20130627
  Serious: Yes (Hospitalization, Disabling, Other)
  Sender: FDA-Public Use
  Company Number: US-ROCHE-393367

PATIENT
  Age: 33 None
  Sex: Male
  Weight: 83.9 kg

DRUGS (2)
  1. ACCUTANE [Suspect]
     Indication: ACNE
     Route: 048
     Dates: start: 19910125, end: 19910517
  2. ACCUTANE [Suspect]
     Route: 048
     Dates: start: 19920124, end: 19920326

REACTIONS (23)
  - Inflammatory bowel disease [Not Recovered/Not Resolved]
  - Abdominal pain [Unknown]
  - Abdominal pain upper [Unknown]
  - Diarrhoea [Unknown]
  - Abdominal pain upper [Unknown]
  - Flatulence [Unknown]
  - Rectal haemorrhage [Unknown]
  - Rectal haemorrhage [Unknown]
  - Intestinal haemorrhage [Unknown]
  - Internal injury [Unknown]
  - Gastrointestinal disorder [Unknown]
  - Colitis [Not Recovered/Not Resolved]
  - Colitis ulcerative [Not Recovered/Not Resolved]
  - Anal stenosis [Unknown]
  - Proctitis ulcerative [Unknown]
  - Colonic stenosis [Unknown]
  - Anaemia [Recovered/Resolved]
  - Dizziness [Unknown]
  - Back pain [Unknown]
  - Nausea [Unknown]
  - Diarrhoea [Unknown]
  - Abdominal pain upper [Unknown]
  - Red blood cell sedimentation rate increased [Unknown]
